FAERS Safety Report 5471510-3 (Version None)
Quarter: 2007Q3

REPORT INFORMATION
  Report Type: 
  Country: None (occurrence: None)
  Receive Date: 20070928
  Receipt Date: 20061205
  Transmission Date: 20080115
  Serious: No
  Sender: FDA-Public Use
  Company Number: US-BRISTOL-MYERS SQUIBB COMPANY-13601885

PATIENT
  Age: 82 Year
  Sex: Female
  Weight: 84 kg

DRUGS (10)
  1. DEFINITY [Suspect]
     Indication: ECHOCARDIOGRAM
     Dates: start: 20061201, end: 20061201
  2. HYDRALAZINE HCL [Concomitant]
  3. ATENOLOL [Concomitant]
  4. LEVOXYL [Concomitant]
  5. XANAX [Concomitant]
  6. PREMARIN [Concomitant]
  7. AMITRIPTYLINE HCL [Concomitant]
  8. NEXIUM [Concomitant]
  9. FLAGYL [Concomitant]
  10. DARVON [Concomitant]

REACTIONS (3)
  - DYSPNOEA [None]
  - FAECAL INCONTINENCE [None]
  - FLUSHING [None]
